FAERS Safety Report 7329080-0 (Version None)
Quarter: 2011Q1

REPORT INFORMATION
  Report Type: 
  Country: None (occurrence: None)
  Receive Date: 20110303
  Receipt Date: 20110223
  Transmission Date: 20110831
  Serious: Yes (Death, Hospitalization)
  Sender: FDA-Public Use
  Company Number: BR-BAYER-2011-017587

PATIENT
  Sex: Male

DRUGS (1)
  1. SORAFENIB (RAF KINASE INHIBITOR) [Suspect]
     Indication: HEPATIC NEOPLASM MALIGNANT
     Dosage: 2 DF, BID
     Route: 048
     Dates: start: 20101201, end: 20110101

REACTIONS (7)
  - VOMITING [None]
  - MULTI-ORGAN FAILURE [None]
  - ALOPECIA [None]
  - DIARRHOEA [None]
  - ASTHENIA [None]
  - HEPATIC FUNCTION ABNORMAL [None]
  - ABDOMINAL DISTENSION [None]
